FAERS Safety Report 13984164 (Version 3)
Quarter: 2017Q4

REPORT INFORMATION
  Report Type: Report from Study
  Country: US (occurrence: US)
  Receive Date: 20170918
  Receipt Date: 20171114
  Transmission Date: 20180321
  Serious: Yes (Hospitalization)
  Sender: FDA-Public Use
  Company Number: US-EXELIXIS-XL18417010490

PATIENT
  Age: 54 Year
  Sex: Male

DRUGS (3)
  1. XL184 [Suspect]
     Active Substance: CABOZANTINIB
     Indication: TRANSITIONAL CELL CARCINOMA
     Dosage: 40 MG, QD
     Route: 048
     Dates: start: 20170614, end: 20170819
  2. NIVOLUMAB [Suspect]
     Active Substance: NIVOLUMAB
     Indication: TRANSITIONAL CELL CARCINOMA
     Dosage: 3 MG/KG, Q2WEEKS
     Route: 042
     Dates: start: 20170614
  3. IPILIMUMAB [Suspect]
     Active Substance: IPILIMUMAB
     Indication: TRANSITIONAL CELL CARCINOMA
     Dosage: 1 MG/KG, Q4WEEKS
     Route: 042
     Dates: start: 20170614, end: 20170614

REACTIONS (2)
  - Cellulitis [Recovered/Resolved with Sequelae]
  - Staphylococcal bacteraemia [Recovered/Resolved with Sequelae]

NARRATIVE: CASE EVENT DATE: 20170819
